FAERS Safety Report 9737382 (Version 1)
Quarter: 2013Q4

REPORT INFORMATION
  Report Type: Spontaneous
  Country: US (occurrence: US)
  Receive Date: 20131206
  Receipt Date: 20131206
  Transmission Date: 20140711
  Serious: No
  Sender: FDA-Public Use
  Company Number: US-BIOGENIDEC-2013BI098808

PATIENT
  Age: 55 Year
  Sex: Female

DRUGS (9)
  1. TECFIDERA [Suspect]
     Indication: MULTIPLE SCLEROSIS
     Route: 048
     Dates: start: 20130903
  2. BACLOFEN [Concomitant]
  3. CITALOPRAM HYDOBROMIDE [Concomitant]
  4. FISH OIL [Concomitant]
  5. GABAPENTIN [Concomitant]
  6. LEVOTHYROXINE SODIUM [Concomitant]
  7. MUTIVITAMINS [Concomitant]
  8. VITAMIN B COMPLEX [Concomitant]
  9. VITAMIN D [Concomitant]

REACTIONS (2)
  - Hair texture abnormal [Unknown]
  - Alopecia [Unknown]
